FAERS Safety Report 10058790 (Version 1)
Quarter: 2014Q2

REPORT INFORMATION
  Report Type: Spontaneous
  Country: US (occurrence: None)
  Receive Date: 20140402
  Receipt Date: 20140402
  Transmission Date: 20141212
  Serious: Yes (Death)
  Sender: FDA-Public Use
  Company Number: 2271510

PATIENT
  Age: 41 Year
  Sex: Male

DRUGS (6)
  1. AZITHROMYCIN [Suspect]
     Indication: URETHRITIS
  2. CEFTRIAXONE SODIUM [Suspect]
     Indication: URETHRITIS
  3. TENOFOVIR [Suspect]
     Indication: HIV INFECTION
     Dates: start: 1999
  4. DIDANOSINE [Suspect]
     Indication: HIV INFECTION
     Dates: start: 1999
  5. ATAZANAVIR [Suspect]
     Indication: HIV INFECTION
     Dates: start: 1999
  6. RITONAVIR [Suspect]
     Indication: HIV INFECTION
     Dates: start: 1999

REACTIONS (14)
  - Jaundice [None]
  - Pancreatitis [None]
  - Fatigue [None]
  - Pruritus [None]
  - Pneumococcal sepsis [None]
  - Anastomotic haemorrhage [None]
  - Renal failure [None]
  - Cholestasis [None]
  - Liver disorder [None]
  - Condition aggravated [None]
  - Hepatomegaly [None]
  - Splenomegaly [None]
  - Ascites [None]
  - Hodgkin^s disease [None]
